FAERS Safety Report 12743570 (Version 1)
Quarter: 2016Q3

REPORT INFORMATION
  Report Type: Spontaneous
  Country: US (occurrence: US)
  Receive Date: 20160914
  Receipt Date: 20160914
  Transmission Date: 20161109
  Serious: Yes (Disabling, Other)
  Sender: FDA-Public Use
  Company Number: None

PATIENT
  Age: 50 Year
  Sex: Female
  Weight: 72.58 kg

DRUGS (35)
  1. TRESIBA [Suspect]
     Active Substance: INSULIN DEGLUDEC
     Indication: DIABETES MELLITUS
     Dosage: TRESIBA - STRENGTH 3ML PRE FILL PER 100 UNITS ML
     Route: 058
     Dates: start: 20160710, end: 20160811
  2. POTASSIUM CHLORIDE ER [Concomitant]
     Active Substance: POTASSIUM CHLORIDE
  3. L-GLUTAMINE /00503401/ [Concomitant]
     Active Substance: GLUTAMINE
  4. TRAZODONE HYDROCHLORIDE. [Concomitant]
     Active Substance: TRAZODONE HYDROCHLORIDE
  5. BIOTIN [Concomitant]
     Active Substance: BIOTIN
  6. KAVINACE [Concomitant]
  7. COQ10 [Concomitant]
     Active Substance: UBIDECARENONE
  8. SELENIUM [Concomitant]
     Active Substance: SELENIUM
  9. NATURAL PROGESTERONE [Concomitant]
     Active Substance: PROGESTERONE
  10. CURCUMASORB [Concomitant]
  11. ADRENAL IGG2000 CWP [Concomitant]
  12. SECRETROPIN [Concomitant]
  13. WP THYROID CHEMSTRIPS [Concomitant]
  14. ISOSORBIDE MONONITRATE ER 30 [Concomitant]
  15. ZINC [Concomitant]
     Active Substance: ZINC\ZINC CHLORIDE
  16. FUROSEMIDE. [Concomitant]
     Active Substance: FUROSEMIDE
  17. CHROMIUM [Concomitant]
     Active Substance: CHROMIC CHLORIDE\CHROMIUM
  18. MAG GLYCINATE [Concomitant]
  19. BETAINE HCL W PEPSIN [Concomitant]
  20. PROGESTRON SR ESTROGEN [Concomitant]
  21. COUNTRYLIFE LIQUID MULTIVITAMIN [Concomitant]
  22. VITAMIN D3 [Concomitant]
     Active Substance: CHOLECALCIFEROL
  23. L-ARGININE [Concomitant]
     Active Substance: ARGININE
  24. OMEGA-3 SUPPLEMENT [Concomitant]
  25. VITAMIN C [Concomitant]
     Active Substance: ASCORBIC ACID
  26. LANTUS [Concomitant]
     Active Substance: INSULIN GLARGINE
  27. NOVOLOG [Concomitant]
     Active Substance: INSULIN ASPART
  28. CLOPIDOGREL BISULFATE. [Concomitant]
     Active Substance: CLOPIDOGREL BISULFATE
  29. ACETYL-CARNITINE [Concomitant]
  30. CHROMIUM [Concomitant]
     Active Substance: CHROMIC CHLORIDE\CHROMIUM
  31. NITROSTAT [Concomitant]
     Active Substance: NITROGLYCERIN
  32. SPECTRA ZYME GLUTEN DIGEST [Concomitant]
  33. CALCIUM [Concomitant]
     Active Substance: CALCIUM
  34. LTHEANINE [Concomitant]
  35. ALAMAX CR [Concomitant]

REACTIONS (11)
  - Headache [None]
  - Heart rate increased [None]
  - Rash [None]
  - Nausea [None]
  - Somnolence [None]
  - Fluid retention [None]
  - Vision blurred [None]
  - Hyperhidrosis [None]
  - Urticaria [None]
  - Dyspnoea [None]
  - Dizziness [None]

NARRATIVE: CASE EVENT DATE: 20160710
